FAERS Safety Report 5558297-0 (Version None)
Quarter: 2007Q4

REPORT INFORMATION
  Report Type: 
  Country: None (occurrence: None)
  Receive Date: 20071214
  Receipt Date: 20071204
  Transmission Date: 20080405
  Serious: Yes (Hospitalization)
  Sender: FDA-Public Use
  Company Number: FR-GILEAD-2007-0012592

PATIENT
  Sex: Male
  Weight: 53 kg

DRUGS (9)
  1. TRUVADA [Suspect]
     Indication: HIV INFECTION
     Route: 048
     Dates: start: 20070614
  2. SUSTIVA [Suspect]
     Indication: HIV INFECTION
     Route: 048
     Dates: start: 20070614, end: 20070629
  3. KALETRA [Concomitant]
     Indication: HIV INFECTION
     Route: 048
     Dates: start: 20070702
  4. BACTRIM [Concomitant]
     Indication: ANTIFUNGAL PROPHYLAXIS
     Route: 048
     Dates: start: 20070501
  5. ZELITREX [Concomitant]
     Indication: ANTIVIRAL PROPHYLAXIS
     Route: 048
     Dates: start: 20070601
  6. TRANXENE [Concomitant]
     Indication: MENTAL DISORDER
     Route: 048
     Dates: start: 20070701
  7. LAROXYL [Concomitant]
     Indication: MENTAL DISORDER
     Route: 048
     Dates: start: 20070701
  8. TERCIAN [Concomitant]
     Indication: MENTAL DISORDER
     Route: 048
     Dates: start: 20070701
  9. IMOVANE [Concomitant]
     Indication: MENTAL DISORDER
     Route: 048
     Dates: start: 20070701

REACTIONS (2)
  - DELIRIUM [None]
  - MENTAL DISORDER [None]
